FAERS Safety Report 10661094 (Version 4)
Quarter: 2015Q1

REPORT INFORMATION
  Report Type: Spontaneous
  Country: BR (occurrence: BR)
  Receive Date: 20141218
  Receipt Date: 20150323
  Transmission Date: 20150720
  Serious: Yes (Death, Hospitalization, Other)
  Sender: FDA-Public Use
  Company Number: BR-PFIZER INC-2014268682

PATIENT
  Age: 66 Year
  Sex: Male

DRUGS (1)
  1. SUTENT [Suspect]
     Active Substance: SUNITINIB MALATE
     Indication: RENAL CELL CARCINOMA
     Dosage: 50 MG, CYCLIC 4 WEEKS ON AND 2 WEEKS OFF
     Route: 048
     Dates: start: 20131016

REACTIONS (10)
  - Hypothermia [Unknown]
  - Decreased appetite [Unknown]
  - Memory impairment [Unknown]
  - Disease progression [Unknown]
  - Device related infection [Unknown]
  - Renal cell carcinoma [Unknown]
  - Death [Fatal]
  - Malaise [Unknown]
  - Thrombocytopenia [Recovered/Resolved]
  - Pyrexia [Unknown]

NARRATIVE: CASE EVENT DATE: 201501
